FAERS Safety Report 9795739 (Version 2)
Quarter: 2014Q1

REPORT INFORMATION
  Report Type: Report from Study
  Country: US (occurrence: US)
  Receive Date: 20140103
  Receipt Date: 20140127
  Transmission Date: 20141002
  Serious: Yes (Death, Hospitalization)
  Sender: FDA-Public Use
  Company Number: PHEH2013US026641

PATIENT
  Age: 47 Year
  Sex: Male

DRUGS (3)
  1. TOBI [Suspect]
     Indication: BRONCHIECTASIS
     Dosage: 300 MG, BID
     Route: 055
  2. TOBI [Suspect]
     Indication: HETEROTAXIA
  3. TOBI [Suspect]
     Indication: PSEUDOMONAS INFECTION

REACTIONS (1)
  - Death [Fatal]
